FAERS Safety Report 5587493-1 (Version None)
Quarter: 2007Q4

REPORT INFORMATION
  Report Type: 
  Country: None (occurrence: None)
  Receive Date: 20071207
  Receipt Date: 20070111
  Transmission Date: 20080405
  Serious: Yes (Other)
  Sender: FDA-Public Use
  Company Number: 2007004016

PATIENT

DRUGS (1)
  1. VIAGRA [Suspect]

REACTIONS (2)
  - CHROMATOPSIA [None]
  - VISION BLURRED [None]
